FAERS Safety Report 6470963-1 (Version None)
Quarter: 2009Q4

REPORT INFORMATION
  Report Type: 
  Country: None (occurrence: None)
  Receive Date: 20091203
  Receipt Date: 20080618
  Transmission Date: 20100525
  Serious: Yes (Hospitalization)
  Sender: FDA-Public Use
  Company Number: DE-ELI_LILLY_AND_COMPANY-DE200801002795

PATIENT
  Age: 74 Year
  Sex: Female

DRUGS (5)
  1. FORTEO [Suspect]
     Indication: OSTEOPOROSIS
     Dosage: 20 UG, DAILY (1/D)
     Route: 058
     Dates: start: 20071002
  2. METEX [Concomitant]
  3. PREDNI [Concomitant]
     Dosage: 5 MG, UNK
  4. REWODINA [Concomitant]
  5. GELONIDA [Concomitant]

REACTIONS (6)
  - ARTHRALGIA [None]
  - BONE PAIN [None]
  - FALL [None]
  - FEMUR FRACTURE [None]
  - RIB FRACTURE [None]
  - TRAUMATIC BRAIN INJURY [None]
